FAERS Safety Report 11277442 (Version 1)
Quarter: 2015Q3

REPORT INFORMATION
  Report Type: Spontaneous
  Country: US (occurrence: US)
  Receive Date: 20150716
  Receipt Date: 20150716
  Transmission Date: 20151125
  Serious: No
  Sender: FDA-Public Use
  Company Number: US-GLAXOSMITHKLINE-US2015098636

PATIENT
  Age: 63 Year
  Sex: Female

DRUGS (5)
  1. METFORMIN [Concomitant]
     Active Substance: METFORMIN HYDROCHLORIDE
  2. HUMALOG [Concomitant]
     Active Substance: INSULIN LISPRO
  3. TANZEUM [Suspect]
     Active Substance: ALBIGLUTIDE
     Indication: BLOOD GLUCOSE
     Dosage: 30 MG, WE
     Route: 042
     Dates: start: 201507
  4. LANTUS [Concomitant]
     Active Substance: INSULIN GLARGINE
  5. TANZEUM [Suspect]
     Active Substance: ALBIGLUTIDE
     Indication: GLYCOSYLATED HAEMOGLOBIN INCREASED

REACTIONS (2)
  - Abdominal pain upper [Recovered/Resolved]
  - Dizziness [Recovered/Resolved]

NARRATIVE: CASE EVENT DATE: 201507
